FAERS Safety Report 24362647 (Version 7)
Quarter: 2025Q2

REPORT INFORMATION
  Report Type: Report from Study
  Country: CO (occurrence: CO)
  Receive Date: 20240925
  Receipt Date: 20250515
  Transmission Date: 20250716
  Serious: Yes (Other)
  Sender: ABBVIE
  Company Number: CO-ABBVIE-5903041

PATIENT
  Age: 59 Year
  Sex: Female
  Weight: 73 kg

DRUGS (8)
  1. RINVOQ [Suspect]
     Active Substance: UPADACITINIB
     Indication: Rheumatoid arthritis
     Route: 048
     Dates: start: 20230905
  2. RINVOQ [Suspect]
     Active Substance: UPADACITINIB
     Indication: Rheumatoid arthritis
     Route: 048
  3. RINVOQ [Suspect]
     Active Substance: UPADACITINIB
     Indication: Rheumatoid arthritis
     Route: 048
     Dates: end: 20250307
  4. PREGABALIN [Suspect]
     Active Substance: PREGABALIN
     Indication: Pain management
     Dosage: 1 (NOT UNIT REPORTED)
     Route: 048
     Dates: start: 202409, end: 202411
  5. PREGABALIN [Suspect]
     Active Substance: PREGABALIN
     Indication: Pain management
     Dosage: 2 (NOT UNIT REPORTED)
     Route: 048
     Dates: start: 202406
  6. AMITRIPTYLINE [Concomitant]
     Active Substance: AMITRIPTYLINE
     Indication: Product used for unknown indication
     Route: 048
     Dates: end: 202409
  7. VITAMIN D [Concomitant]
     Active Substance: VITAMIN D NOS
     Indication: Product used for unknown indication
     Dosage: 1 (DOES NOT REFER TO ?MEASUREMENT UNIT) DAILY
     Route: 048
  8. PIROXICAM [Suspect]
     Active Substance: PIROXICAM
     Indication: General symptom
     Route: 065

REACTIONS (39)
  - Haemorrhage [Unknown]
  - Fall [Unknown]
  - Limb deformity [Unknown]
  - Hypertension [Not Recovered/Not Resolved]
  - Pain in extremity [Recovered/Resolved]
  - Therapeutic product effect incomplete [Not Recovered/Not Resolved]
  - Reflux gastritis [Not Recovered/Not Resolved]
  - Ligament sprain [Not Recovered/Not Resolved]
  - Inflammation [Recovered/Resolved]
  - Pelvic misalignment [Not Recovered/Not Resolved]
  - Headache [Not Recovered/Not Resolved]
  - Hypoaesthesia [Not Recovered/Not Resolved]
  - Arthralgia [Not Recovered/Not Resolved]
  - Tachycardia [Not Recovered/Not Resolved]
  - Peripheral coldness [Not Recovered/Not Resolved]
  - Nasal discomfort [Not Recovered/Not Resolved]
  - Fibromyalgia [Not Recovered/Not Resolved]
  - Paraesthesia [Not Recovered/Not Resolved]
  - Headache [Recovering/Resolving]
  - Rhinalgia [Unknown]
  - Anaemia [Not Recovered/Not Resolved]
  - Gait disturbance [Not Recovered/Not Resolved]
  - Spinal pain [Not Recovered/Not Resolved]
  - Dysstasia [Not Recovered/Not Resolved]
  - Pain in extremity [Recovered/Resolved]
  - Musculoskeletal disorder [Recovered/Resolved]
  - Dizziness [Recovering/Resolving]
  - Vomiting [Recovering/Resolving]
  - Panic attack [Recovering/Resolving]
  - Anxiety [Recovering/Resolving]
  - Initial insomnia [Recovering/Resolving]
  - Osteitis [Recovering/Resolving]
  - Pain [Not Recovered/Not Resolved]
  - Gastrointestinal disorder [Unknown]
  - Rheumatoid arthritis [Not Recovered/Not Resolved]
  - Peripheral swelling [Not Recovered/Not Resolved]
  - Musculoskeletal disorder [Unknown]
  - Treatment noncompliance [Unknown]
  - Hyperchlorhydria [Not Recovered/Not Resolved]

NARRATIVE: CASE EVENT DATE: 20230101
